FAERS Safety Report 5238341-0 (Version None)
Quarter: 2007Q1

REPORT INFORMATION
  Report Type: 
  Country: None (occurrence: None)
  Receive Date: 20061208
  Receipt Date: 20050322
  Transmission Date: 20070707
  Serious: Yes (Other)
  Sender: FDA-Public Use
  Company Number: 2005UW03281

PATIENT
  Age: 82 Year
  Sex: Female
  Weight: 79.378 kg

DRUGS (4)
  1. CRESTOR [Suspect]
     Indication: BLOOD CHOLESTEROL INCREASED
     Dosage: 10 MG DAILY PO
     Route: 048
     Dates: start: 20031211
  2. ESTROGENS SOL/INJ [Concomitant]
  3. VITAMINS [Concomitant]
  4. CARDIZEM [Concomitant]

REACTIONS (2)
  - CONSTIPATION [None]
  - DYSGEUSIA [None]
